FAERS Safety Report 9670372 (Version 2)
Quarter: 2014Q1

REPORT INFORMATION
  Report Type: Spontaneous
  Country: US (occurrence: US)
  Receive Date: 20131105
  Receipt Date: 20140122
  Transmission Date: 20141002
  Serious: Yes (Hospitalization, Other)
  Sender: FDA-Public Use
  Company Number: US-TEVA-442012USA

PATIENT
  Age: 65 Year
  Sex: Female
  Weight: 61.29 kg

DRUGS (8)
  1. PROAIR HFA [Suspect]
     Indication: LUNG DISORDER
     Dosage: 2 PUFFS EVERY 4-6 HOURS AS NEEDED
     Route: 055
  2. COMBIVENT [Concomitant]
     Indication: LUNG DISORDER
  3. SYMBICORT [Concomitant]
  4. ASPIRIN [Concomitant]
     Indication: CARDIAC DISORDER
     Dosage: 81  DAILY;
  5. BISOPROPOL [Concomitant]
     Indication: CARDIAC DISORDER
  6. MONTELUKAST [Concomitant]
     Indication: HYPERSENSITIVITY
  7. OXYGEN [Concomitant]
  8. CETIRIZINE [Concomitant]

REACTIONS (13)
  - Coronary artery occlusion [Unknown]
  - Stent placement [Recovered/Resolved]
  - Cerebrovascular accident [Unknown]
  - Myocardial ischaemia [Unknown]
  - Chest pain [Unknown]
  - Dyspnoea exertional [Unknown]
  - Palpitations [Unknown]
  - Coronary artery disease [Unknown]
  - Chronic obstructive pulmonary disease [Unknown]
  - Hypertension [Unknown]
  - Weight increased [Unknown]
  - Throat irritation [Not Recovered/Not Resolved]
  - Lung disorder [Unknown]
